FAERS Safety Report 6631485-8 (Version None)
Quarter: 2010Q1

REPORT INFORMATION
  Report Type: 
  Country: None (occurrence: None)
  Receive Date: 20100312
  Receipt Date: 20100301
  Transmission Date: 20100710
  Serious: Yes (Hospitalization, Other)
  Sender: FDA-Public Use
  Company Number: PHEH2009US12650

PATIENT
  Sex: Female
  Weight: 63.401 kg

DRUGS (11)
  1. EXJADE [Suspect]
     Indication: SICKLE CELL ANAEMIA
     Dosage: 1500 MG DAILY
     Route: 048
     Dates: start: 20090622, end: 20090820
  2. EXJADE [Suspect]
     Indication: IRON OVERLOAD
     Dosage: 375 MG TO 1000 MG, DAILY
     Route: 048
     Dates: end: 20091120
  3. EXJADE [Suspect]
     Dosage: UNK
     Route: 048
     Dates: start: 20100121
  4. AMBIEN [Concomitant]
     Dosage: 1 TABLET, AS NEEDED, AT BEDTIME
     Route: 048
  5. ATIVAN [Concomitant]
     Dosage: 1 DF, TID, AS NEEDED
     Route: 048
  6. COLACE [Concomitant]
     Dosage: 1 CAPSULEEVERY DAY, AS NEEDED
     Route: 048
  7. LEVOXYL [Concomitant]
     Dosage: 1 TABLET EVERYDAY
     Route: 048
  8. MAGNESIUM OXIDE [Concomitant]
     Dosage: 1 DF, BID
     Route: 048
  9. OXYCODONE HCL [Concomitant]
     Dosage: 1-2 TABLET, EVERY 4 TO 6 HOURS, AS NEEDED
     Route: 048
  10. OXYCONTIN [Concomitant]
     Dosage: 2 TABLET, EVERY 8 HOURS, AS NEEDED
     Route: 048
  11. PREDNISONE [Concomitant]
     Dosage: 1 TABLET DAILY
     Route: 048

REACTIONS (11)
  - FATIGUE [None]
  - LIVER DISORDER [None]
  - LOCALISED OEDEMA [None]
  - OEDEMA PERIPHERAL [None]
  - PRURITUS [None]
  - PULMONARY HYPERTENSION [None]
  - RASH [None]
  - RIGHT VENTRICULAR FAILURE [None]
  - SICKLE CELL ANAEMIA WITH CRISIS [None]
  - SWELLING [None]
  - URTICARIA [None]
